FAERS Safety Report 7062519-7 (Version None)
Quarter: 2010Q4

REPORT INFORMATION
  Report Type: 
  Country: None (occurrence: None)
  Receive Date: 20101026
  Receipt Date: 20091116
  Transmission Date: 20110411
  Serious: No
  Sender: FDA-Public Use
  Company Number: US-PFIZER INC-2009287818

PATIENT
  Sex: Female
  Weight: 87.5 kg

DRUGS (5)
  1. LIPITOR [Suspect]
     Indication: BLOOD CHOLESTEROL INCREASED
     Dosage: 10 MG, DAILY
     Route: 048
     Dates: start: 20050101
  2. SYNTHROID [Concomitant]
     Indication: THYROID DISORDER
     Dosage: 75 MG, DAILY
     Route: 048
  3. FELODIPINE [Concomitant]
     Indication: HYPERTENSION
     Dosage: 10 MG, DAILY
     Route: 048
  4. CARVEDILOL [Concomitant]
     Indication: HYPERTENSION
     Dosage: 12.5 MG, 3X/DAY
     Route: 048
  5. BENICAR [Concomitant]
     Indication: DIURETIC THERAPY
     Dosage: 40/12.5MG ONCE DAILY
     Route: 048

REACTIONS (3)
  - MUSCLE SPASMS [None]
  - MYALGIA [None]
  - PAIN IN EXTREMITY [None]
